FAERS Safety Report 7179345-0 (Version None)
Quarter: 2010Q4

REPORT INFORMATION
  Report Type: 
  Country: None (occurrence: None)
  Receive Date: 20101217
  Receipt Date: 20101217
  Transmission Date: 20110411
  Serious: Yes (Hospitalization)
  Sender: FDA-Public Use
  Company Number: None

PATIENT
  Age: 94 Year
  Sex: Female
  Weight: 56.2 kg

DRUGS (1)
  1. PRADAXA [Suspect]
     Dosage: 150MG DAILY PO
     Route: 048
     Dates: start: 20101201, end: 20101215

REACTIONS (2)
  - COAGULOPATHY [None]
  - HAEMATURIA [None]
